FAERS Safety Report 9888561 (Version 2)
Quarter: 2014Q1

REPORT INFORMATION
  Report Type: Spontaneous
  Country: US (occurrence: US)
  Receive Date: 20140211
  Receipt Date: 20140317
  Transmission Date: 20141002
  Serious: No
  Sender: FDA-Public Use
  Company Number: US-009507513-1402USA005080

PATIENT
  Age: 95 Year
  Sex: Female
  Weight: 68.27 kg

DRUGS (1)
  1. OXYTROL FOR WOMEN [Suspect]
     Indication: NOCTURIA
     Dosage: 1 DF, Q4D
     Route: 062
     Dates: start: 20131005

REACTIONS (1)
  - Dysphonia [Recovered/Resolved]
